FAERS Safety Report 25229453 (Version 1)
Quarter: 2025Q2

REPORT INFORMATION
  Report Type: Spontaneous
  Country: MX (occurrence: MX)
  Receive Date: 20250423
  Receipt Date: 20250423
  Transmission Date: 20250717
  Serious: Yes (Death, Hospitalization, Other)
  Sender: RANBAXY
  Company Number: MX-SUN PHARMACEUTICAL INDUSTRIES LTD-2025R1-504671

PATIENT
  Sex: Male
  Weight: 2.9 kg

DRUGS (1)
  1. INDOMETHACIN [Suspect]
     Active Substance: INDOMETHACIN
     Indication: Pulmonary malformation
     Route: 064

REACTIONS (7)
  - Premature baby [Fatal]
  - Foetal exposure during pregnancy [Unknown]
  - Respiratory distress [Fatal]
  - Pulmonary hypertension [Fatal]
  - Pulmonary hypoplasia [Fatal]
  - Pulmonary malformation [Fatal]
  - Cyanosis [Fatal]
